FAERS Safety Report 5267358-5 (Version None)
Quarter: 2007Q1

REPORT INFORMATION
  Report Type: 
  Country: None (occurrence: None)
  Receive Date: 20070316
  Receipt Date: 20070313
  Transmission Date: 20070707
  Serious: Yes (Disabling, Other)
  Sender: FDA-Public Use
  Company Number: GB-MERCK-0604GBR00010

PATIENT
  Age: 67 Year
  Sex: Female

DRUGS (2)
  1. TIMOPTIC [Suspect]
     Indication: GLAUCOMA
     Route: 047
     Dates: start: 20060325, end: 20060325
  2. LATANOPROST [Concomitant]
     Indication: GLAUCOMA
     Route: 065
     Dates: start: 20060216

REACTIONS (3)
  - DEAFNESS [None]
  - DIZZINESS [None]
  - TINNITUS [None]
